FAERS Safety Report 6257272-0 (Version None)
Quarter: 2009Q3

REPORT INFORMATION
  Report Type: 
  Country: None (occurrence: None)
  Receive Date: 20090706
  Receipt Date: 20090629
  Transmission Date: 20100115
  Serious: Yes (Hospitalization)
  Sender: FDA-Public Use
  Company Number: US-GILEAD-2009-0022498

PATIENT
  Sex: Female
  Weight: 55.842 kg

DRUGS (28)
  1. LETAIRIS [Suspect]
     Indication: PULMONARY ARTERIAL HYPERTENSION
     Route: 048
     Dates: start: 20080214
  2. SILDENAFIL CITRATE [Concomitant]
     Dates: start: 20060101
  3. OXYGEN [Concomitant]
  4. FLOLAN [Concomitant]
     Dates: start: 19930101
  5. METOLAZONE [Concomitant]
  6. LASIX [Concomitant]
  7. TORSEMIDE [Concomitant]
  8. ALDACTONE [Concomitant]
  9. POTASSIUM CHLORIDE [Concomitant]
  10. NYSTATIN [Concomitant]
  11. DOCUSATE SODIUM [Concomitant]
  12. LACTULOSE [Concomitant]
  13. MAGNESIUM SULFATE [Concomitant]
  14. FERROUS GLUCONATE [Concomitant]
  15. LEVOTHYROXINE SODIUM [Concomitant]
  16. FOSAMAX [Concomitant]
  17. SODIUM CHLORIDE [Concomitant]
  18. TYLENOL (CAPLET) [Concomitant]
  19. NEXIUM [Concomitant]
  20. HUMULIN R [Concomitant]
  21. TUMS [Concomitant]
  22. HYDROCODON/APAP [Concomitant]
  23. AMBIEN [Concomitant]
  24. METAMUCIL [Concomitant]
  25. PRILOSEC [Concomitant]
  26. CALCIUM [Concomitant]
  27. VITAMIN B-12 [Concomitant]
  28. ASCORBIC ACID [Concomitant]

REACTIONS (1)
  - PANCREATITIS [None]
